FAERS Safety Report 8450738-4 (Version None)
Quarter: 2012Q2

REPORT INFORMATION
  Report Type: 
  Country: None (occurrence: None)
  Receive Date: 20120613
  Receipt Date: 20120604
  Transmission Date: 20120825
  Serious: Yes (Other)
  Sender: FDA-Public Use
  Company Number: DKLU1081557

PATIENT
  Age: 22 Month
  Sex: Male

DRUGS (1)
  1. SABRIL [Suspect]
     Indication: INFANTILE SPASMS
     Dosage: 500 MG MILLIGRAM(S), EVERY MORNING, ORAL, 1000 MG MILLIGRAM(S), EVERY NIGHT, ORAL
     Route: 048
     Dates: start: 20110801, end: 20120601

REACTIONS (2)
  - RETINAL DEPIGMENTATION [None]
  - VISUAL IMPAIRMENT [None]
